FAERS Safety Report 7219423-0 (Version None)
Quarter: 2011Q1

REPORT INFORMATION
  Report Type: 
  Country: None (occurrence: None)
  Receive Date: 20110111
  Receipt Date: 20110105
  Transmission Date: 20110831
  Serious: Yes (Hospitalization)
  Sender: FDA-Public Use
  Company Number: US-B.I. PHARMACEUTICALS,INC./RIDGEFIELD-2011-BP-00386BP

PATIENT

DRUGS (1)
  1. SPIRIVA [Suspect]

REACTIONS (2)
  - SYNCOPE [None]
  - EPISTAXIS [None]
